FAERS Safety Report 16943269 (Version 1)
Quarter: 2019Q4

REPORT INFORMATION
  Report Type: Spontaneous
  Country: CN (occurrence: CN)
  Receive Date: 20191021
  Receipt Date: 20191021
  Transmission Date: 20200122
  Serious: Yes (Hospitalization)
  Sender: FDA-Public Use
  Company Number: CN-BAXTER-2019BAX020562

PATIENT
  Age: 65 Year
  Sex: Male
  Weight: 60 kg

DRUGS (16)
  1. 0.9% SODIUM CHLORIDE INJECTION [Suspect]
     Active Substance: SODIUM CHLORIDE
     Dosage: VINDESINE SULFATE 5 MG DILUTE WITH 0.9% NS 40 ML, DAY 2
     Route: 042
     Dates: start: 20190907, end: 20190907
  2. 0.9% SODIUM CHLORIDE INJECTION [Suspect]
     Active Substance: SODIUM CHLORIDE
     Dosage: DOSE RE-INTRODUCED, VINDESINE SULFATE+ 0.9% NS
     Route: 042
  3. ENDOXAN [Suspect]
     Active Substance: CYCLOPHOSPHAMIDE
     Indication: LYMPHOMA
     Dosage: ENDOXAN 1.2 G DILUTED WITH 0.9% NS 80 ML, DAY 2
     Route: 042
     Dates: start: 20190907, end: 20190907
  4. 0.9% SODIUM CHLORIDE INJECTION [Suspect]
     Active Substance: SODIUM CHLORIDE
     Dosage: DOSE RE-INTRODUCED, MABTHERA+ 0.9 % NS
     Route: 041
  5. MABTHERA [Suspect]
     Active Substance: RITUXIMAB
     Dosage: DOSE RE-INTRODUCED, MABTHERA+ 0.9 % NS
     Route: 041
  6. VINDESINE SULFATE [Suspect]
     Active Substance: VINDESINE SULFATE
     Indication: LYMPHOMA
     Dosage: VINDESINE SULFATE 5 MG DILUTE WITH 0.9% NS 40 ML, DAY 2
     Route: 042
     Dates: start: 20190907, end: 20190907
  7. ENDOXAN [Suspect]
     Active Substance: CYCLOPHOSPHAMIDE
     Dosage: DOSE RE-INTRODUCED, ENDOXAN +0.9% NS
     Route: 042
  8. STERILE WATER FOR INJECTION [Suspect]
     Active Substance: WATER
     Indication: MEDICATION DILUTION
     Dosage: EPIRUBICIN HYDROCHLORIDE 60 MG DILUTED WITH WATER 810 ML, DAY 2-3
     Route: 042
     Dates: start: 20190907, end: 20190908
  9. 0.9% SODIUM CHLORIDE INJECTION [Suspect]
     Active Substance: SODIUM CHLORIDE
     Indication: MEDICATION DILUTION
     Dosage: MABTHERA 700 MG DILUTED WITH 0.9 % NS 700 ML, DAY 1
     Route: 041
     Dates: start: 20190906, end: 20190906
  10. STERILE WATER FOR INJECTION [Suspect]
     Active Substance: WATER
     Dosage: DOSE RE-INTRODUCED, EPIRUBICIN HYDROCHLORIDE+ WATER
     Route: 042
  11. MABTHERA [Suspect]
     Active Substance: RITUXIMAB
     Indication: LYMPHOMA
     Dosage: MABTHERA 700 MG DILUTED WITH 0.9 % NS 700 ML, DAY 1
     Route: 041
     Dates: start: 20190906, end: 20190906
  12. EPIRUBICIN HYDROCHLORIDE. [Suspect]
     Active Substance: EPIRUBICIN HYDROCHLORIDE
     Indication: LYMPHOMA
     Dosage: EPIRUBICIN HYDROCHLORIDE 60 MG DILUTED WITH WATER 810 ML, DAY 2-3
     Route: 042
     Dates: start: 20190907, end: 20190908
  13. VINDESINE SULFATE [Suspect]
     Active Substance: VINDESINE SULFATE
     Dosage: DOSE RE-INTRODUCED, VINDESINE SULFATE+0.9% NS
     Route: 042
  14. EPIRUBICIN HYDROCHLORIDE. [Suspect]
     Active Substance: EPIRUBICIN HYDROCHLORIDE
     Dosage: DOSE RE-INTRODUCED, EPIRUBICIN HYDROCHLORIDE+ WATER
     Route: 042
  15. 0.9% SODIUM CHLORIDE INJECTION [Suspect]
     Active Substance: SODIUM CHLORIDE
     Dosage: ENDOXAN 1.2 G DILUTED WITH 0.9% NS 80 ML, DAY  2
     Route: 042
     Dates: start: 20190907, end: 20190907
  16. 0.9% SODIUM CHLORIDE INJECTION [Suspect]
     Active Substance: SODIUM CHLORIDE
     Dosage: DOSE RE-INTRODUCED, ENDOXAN +0.9% NS
     Route: 042

REACTIONS (1)
  - Bone marrow failure [Recovering/Resolving]

NARRATIVE: CASE EVENT DATE: 20190916
